FAERS Safety Report 11037117 (Version 1)
Quarter: 2015Q2

REPORT INFORMATION
  Report Type: Spontaneous
  Country: US (occurrence: US)
  Receive Date: 20150416
  Receipt Date: 20150416
  Transmission Date: 20150821
  Serious: No
  Sender: FDA-Public Use
  Company Number: US-BIOGENIDEC-2015BI046572

PATIENT
  Age: 55 Year
  Sex: Female

DRUGS (12)
  1. CALCIUM + D [Concomitant]
     Active Substance: CALCIUM\VITAMIN D
  2. FIBER LAX [Concomitant]
     Active Substance: CALCIUM POLYCARBOPHIL
  3. PROPRANOLOL HCI [Concomitant]
  4. TECFIDERA [Suspect]
     Active Substance: DIMETHYL FUMARATE
     Indication: MULTIPLE SCLEROSIS
     Route: 048
  5. DETROL [Concomitant]
     Active Substance: TOLTERODINE TARTRATE
  6. FERROUS [Concomitant]
     Active Substance: FERROUS SULFATE\GLYCINE
  7. BACLOFEN. [Concomitant]
     Active Substance: BACLOFEN
  8. FLONASE [Concomitant]
     Active Substance: FLUTICASONE PROPIONATE
  9. LYRICA [Concomitant]
     Active Substance: PREGABALIN
  10. VENLAFAXINE HCI [Concomitant]
  11. OMPERAZOLE [Concomitant]
     Active Substance: OMEPRAZOLE
  12. VITAMIN B COMPLEX [Concomitant]
     Active Substance: CYANOCOBALAMIN\DEXPANTHENOL\NIACINAMIDE\PYRIDOXINE HYDROCHLORIDE\RIBOFLAVIN 5^-PHOSPHATE SODIUM\THIAMINE HYDROCHLORIDE\VITAMIN B COMPLEX

REACTIONS (1)
  - Pollakiuria [Unknown]
